FAERS Safety Report 4280655-5 (Version None)
Quarter: 2004Q1

REPORT INFORMATION
  Report Type: 
  Country: None (occurrence: None)
  Receive Date: 20040123
  Receipt Date: 20040107
  Transmission Date: 20041129
  Serious: Yes (Hospitalization)
  Sender: FDA-Public Use
  Company Number: 2004003685

PATIENT
  Age: 62 Year
  Sex: Female

DRUGS (2)
  1. LITHIUM CARBONATE [Suspect]
     Indication: ILL-DEFINED DISORDER
     Dosage: 900 MG (DAILY),
  2. ROFECOXIB [Suspect]
     Indication: ILL-DEFINED DISORDER
     Dosage: 25 MG (DAILY),

REACTIONS (4)
  - CONFUSIONAL STATE [None]
  - DRUG INTERACTION [None]
  - DRUG LEVEL INCREASED [None]
  - URINARY TRACT INFECTION [None]
